FAERS Safety Report 5083691-4 (Version None)
Quarter: 2006Q3

REPORT INFORMATION
  Report Type: 
  Country: None (occurrence: None)
  Receive Date: 20060818
  Receipt Date: 20060809
  Transmission Date: 20061208
  Serious: Yes (Death, Hospitalization)
  Sender: FDA-Public Use
  Company Number: US-JNJFOC-20060802823

PATIENT
  Sex: Female
  Weight: 47.63 kg

DRUGS (4)
  1. ACETAMINOPHEN [Suspect]
  2. ACETAMINOPHEN [Suspect]
     Indication: SUICIDE ATTEMPT
  3. CISAPRIDE [Suspect]
     Indication: GASTROINTESTINAL MOTILITY DISORDER
     Route: 048
  4. CISAPRIDE [Suspect]
     Indication: GASTROOESOPHAGEAL REFLUX DISEASE
     Route: 048

REACTIONS (2)
  - COMPLETED SUICIDE [None]
  - INTENTIONAL OVERDOSE [None]
